FAERS Safety Report 5880123-0 (Version None)
Quarter: 2008Q3

REPORT INFORMATION
  Report Type: 
  Country: None (occurrence: None)
  Receive Date: 20080912
  Receipt Date: 20080901
  Transmission Date: 20090109
  Serious: Yes (Hospitalization, Other)
  Sender: FDA-Public Use
  Company Number: BR-PFIZER INC-2008073496

PATIENT
  Sex: Female
  Weight: 52 kg

DRUGS (2)
  1. DEPO-PROVERA SUSPENSION/INJ [Suspect]
     Indication: CONTRACEPTION
     Dates: start: 20060101, end: 20060101
  2. DEPO-PROVERA SUSPENSION/INJ [Suspect]
     Dates: start: 20080826, end: 20080826

REACTIONS (7)
  - AMENORRHOEA [None]
  - HALLUCINATION, AUDITORY [None]
  - HEADACHE [None]
  - INAPPROPRIATE SCHEDULE OF DRUG ADMINISTRATION [None]
  - INSOMNIA [None]
  - NERVOUSNESS [None]
  - VIOLENCE-RELATED SYMPTOM [None]
